FAERS Safety Report 10255058 (Version 1)
Quarter: 2013Q4

REPORT INFORMATION
  Report Type: Spontaneous
  Country: US (occurrence: None)
  Receive Date: 20121217
  Receipt Date: 20121217
  Transmission Date: 20140711
  Serious: Yes (Death, Hospitalization)
  Sender: FDA-Public Use
  Company Number: None

PATIENT
  Age: 73 Year
  Sex: Male

DRUGS (2)
  1. MEDROL [Suspect]
  2. TRIAMCINOLONE [Suspect]

REACTIONS (9)
  - General physical health deterioration [None]
  - Pyrexia [None]
  - Gout [None]
  - Joint swelling [None]
  - Infarction [None]
  - Photophobia [None]
  - Visual impairment [None]
  - Hypotension [None]
  - Dysphagia [None]
